FAERS Safety Report 21510998 (Version 3)
Quarter: 2023Q2

REPORT INFORMATION
  Report Type: Spontaneous
  Country: BR (occurrence: BR)
  Receive Date: 20221027
  Receipt Date: 20230410
  Transmission Date: 20230721
  Serious: Yes (Other)
  Sender: FDA-Public Use
  Company Number: BR-CELLTRION INC.-2022BR017577

PATIENT

DRUGS (4)
  1. INFLIXIMAB [Suspect]
     Active Substance: INFLIXIMAB
     Indication: Ankylosing spondylitis
     Dosage: 5 AMPOULES EVERY 60 DAYS (FORMULATION: 100MG)
     Route: 042
     Dates: start: 20221017
  2. SULFASALAZINE [Concomitant]
     Active Substance: SULFASALAZINE
     Indication: Spondylitis
     Dosage: 500 MG, 4 PILLS PER DAY, START: 6 MONTHS AGO
     Route: 048
  3. METHOTREXATE [Concomitant]
     Active Substance: METHOTREXATE
     Indication: Spondylitis
     Dosage: 2 MG, 10 PILLS PER WEEK
     Route: 048
     Dates: start: 2016
  4. PREDNISONE [Concomitant]
     Active Substance: PREDNISONE
     Indication: Spondylitis
     Dosage: 20 MG, 1 PILL PER DAY
     Route: 048
     Dates: start: 2014

REACTIONS (7)
  - Musculoskeletal pain [Not Recovered/Not Resolved]
  - Condition aggravated [Not Recovered/Not Resolved]
  - Spinal pain [Not Recovered/Not Resolved]
  - Arthralgia [Not Recovered/Not Resolved]
  - Product availability issue [Unknown]
  - Therapy interrupted [Unknown]
  - Underdose [Unknown]
